FAERS Safety Report 13066365 (Version 1)
Quarter: 2016Q4

REPORT INFORMATION
  Report Type: Spontaneous
  Country: FR (occurrence: FR)
  Receive Date: 20161227
  Receipt Date: 20161227
  Transmission Date: 20170207
  Serious: Yes (Life-Threatening)
  Sender: FDA-Public Use
  Company Number: FR-SA-2016SA233865

PATIENT
  Age: 92 Year
  Sex: Male

DRUGS (9)
  1. AMIODARONE [Concomitant]
     Active Substance: AMIODARONE
     Route: 048
  2. APROVEL [Suspect]
     Active Substance: IRBESARTAN
     Route: 048
  3. PANTOPRAZOLE [Concomitant]
     Active Substance: PANTOPRAZOLE SODIUM
     Route: 048
  4. HEMIGOXINE NATIVELLE [Suspect]
     Active Substance: DIGOXIN
     Indication: CARDIAC FAILURE
     Route: 048
     Dates: end: 20161125
  5. FUROSEMIDE. [Concomitant]
     Active Substance: FUROSEMIDE
     Dosage: 2-1-0
     Route: 048
  6. PREVISCAN [Concomitant]
     Active Substance: FLUINDIONE
     Route: 048
     Dates: end: 20161206
  7. ALLOPURINOL. [Concomitant]
     Active Substance: ALLOPURINOL
     Route: 048
  8. KAYEXALATE [Concomitant]
     Active Substance: SODIUM POLYSTYRENE SULFONATE
     Route: 048
  9. XALATAN [Concomitant]
     Active Substance: LATANOPROST
     Dosage: IN THE EVENING

REACTIONS (2)
  - Arrhythmia [Recovered/Resolved]
  - Cardioactive drug level increased [Recovered/Resolved]

NARRATIVE: CASE EVENT DATE: 20161125
